FAERS Safety Report 5059477-3 (Version None)
Quarter: 2006Q3

REPORT INFORMATION
  Report Type: 
  Country: None (occurrence: None)
  Receive Date: 20060724
  Receipt Date: 20060712
  Transmission Date: 20061208
  Serious: Yes (Hospitalization)
  Sender: FDA-Public Use
  Company Number: PHBS2006IT10495

PATIENT
  Age: 54 Year
  Sex: Female

DRUGS (3)
  1. ZOMETA [Suspect]
     Indication: BREAST CANCER
     Dosage: 4 MG, QMO
     Route: 042
     Dates: start: 20040301, end: 20050701
  2. TAMOXIFEN CITRATE [Concomitant]
     Route: 065
  3. CYCLOPHOSPHAMIDE + 5-FU + METHOTREXATE [Concomitant]
     Route: 065

REACTIONS (2)
  - OSTEOMYELITIS [None]
  - SURGERY [None]
